FAERS Safety Report 17519919 (Version 1)
Quarter: 2020Q1

REPORT INFORMATION
  Report Type: Spontaneous
  Country: DK (occurrence: DK)
  Receive Date: 20200310
  Receipt Date: 20200310
  Transmission Date: 20200409
  Serious: Yes (Death)
  Sender: FDA-Public Use
  Company Number: DK-FRESENIUS KABI-FK202002388

PATIENT
  Age: 81 Year
  Sex: Male

DRUGS (3)
  1. METHYLPREDNISOLONE (MANUFACTURER UNKNOWN) [Suspect]
     Active Substance: METHYLPREDNISOLONE
     Indication: SCLERITIS
     Route: 065
  2. PREDNISOLONE. [Suspect]
     Active Substance: PREDNISOLONE
     Indication: SCLERITIS
     Dosage: TAPERING OVER 3 WEEKS FROM 100 TO 30MG
     Route: 048
  3. RITUXIMAB. [Suspect]
     Active Substance: RITUXIMAB
     Indication: SCLERITIS
     Dosage: 1000MG ADMINISTERED TWICE, 2 WEEKS APART
     Route: 048

REACTIONS (1)
  - Pneumocystis jirovecii pneumonia [Fatal]
